FAERS Safety Report 7554476-1 (Version None)
Quarter: 2011Q2

REPORT INFORMATION
  Report Type: 
  Country: None (occurrence: None)
  Receive Date: 20110617
  Receipt Date: 20110609
  Transmission Date: 20111010
  Serious: Yes (Other)
  Sender: FDA-Public Use
  Company Number: A0931667A

PATIENT
  Age: 63 Year
  Sex: Female

DRUGS (8)
  1. VITAMIN TAB [Concomitant]
  2. BETIMOL [Concomitant]
  3. VALTREX [Suspect]
     Dosage: 1G PER DAY
     Route: 048
     Dates: start: 20090301
  4. CALCIUM CARBONATE [Concomitant]
  5. FEMARA [Concomitant]
  6. PRED FORTE [Concomitant]
  7. ALENDRONATE SODIUM [Concomitant]
  8. VITAMIN D [Concomitant]

REACTIONS (2)
  - CATARACT [None]
  - BREAST CANCER [None]
